FAERS Safety Report 18678456 (Version 1)
Quarter: 2020Q4

REPORT INFORMATION
  Report Type: Spontaneous
  Country: US (occurrence: US)
  Receive Date: 20201229
  Receipt Date: 20201229
  Transmission Date: 20210114
  Serious: Yes (Hospitalization, Other)
  Sender: FDA-Public Use
  Company Number: US-BRISTOL-MYERS SQUIBB COMPANY-BMS-2020-109703

PATIENT
  Sex: Female
  Weight: 74.38 kg

DRUGS (1)
  1. YERVOY [Suspect]
     Active Substance: IPILIMUMAB
     Indication: MALIGNANT MELANOMA
     Dosage: 200 MILLIGRAM, Q3WK (ONLY RECEIVED 3 DOSES )
     Route: 042
     Dates: start: 20201007, end: 20201119

REACTIONS (6)
  - Prescribed underdose [Unknown]
  - Renal disorder [Unknown]
  - Hospitalisation [Unknown]
  - Liver disorder [Unknown]
  - Malaise [Unknown]
  - Thyroid disorder [Unknown]
